FAERS Safety Report 6784340-7 (Version None)
Quarter: 2010Q2

REPORT INFORMATION
  Report Type: 
  Country: None (occurrence: None)
  Receive Date: 20100622
  Receipt Date: 20100611
  Transmission Date: 20101027
  Serious: Yes (Death)
  Sender: FDA-Public Use
  Company Number: US-JNJCH-2010013251

PATIENT
  Age: 52 Year
  Sex: Female
  Weight: 70.3 kg

DRUGS (2)
  1. CHILDREN'S BENADRYL ALLERGY [Suspect]
     Indication: PRURITUS
     Dosage: TEXT:1-2 TLB
     Route: 048
  2. TYLENOL [Suspect]
     Indication: BACK DISORDER
     Dosage: TEXT:1-2 TABLETS
     Route: 048

REACTIONS (2)
  - DEATH [None]
  - PRODUCT QUALITY ISSUE [None]
